FAERS Safety Report 8577958-2 (Version None)
Quarter: 2012Q3

REPORT INFORMATION
  Report Type: 
  Country: None (occurrence: None)
  Receive Date: 20120808
  Receipt Date: 20120803
  Transmission Date: 20120928
  Serious: Yes (Other)
  Sender: FDA-Public Use
  Company Number: US-AMGEN-USASP2012048817

PATIENT
  Sex: Female

DRUGS (2)
  1. ANTINEOPLASTIC AGENTS [Concomitant]
  2. XGEVA [Suspect]
     Indication: PROPHYLAXIS
     Dosage: 120 MG, Q4WK
     Dates: start: 20120101, end: 20120701

REACTIONS (1)
  - OSTEONECROSIS OF JAW [None]
